FAERS Safety Report 19957242 (Version 1)
Quarter: 2021Q4

REPORT INFORMATION
  Report Type: Spontaneous
  Country: AU (occurrence: AU)
  Receive Date: 20211014
  Receipt Date: 20211014
  Transmission Date: 20220303
  Serious: Yes (Life-Threatening, Hospitalization, Other)
  Sender: FDA-Public Use
  Company Number: AU-ABBVIE-21K-008-4119194-00

PATIENT
  Age: 57 Year
  Sex: Female

DRUGS (6)
  1. VALPROIC ACID [Suspect]
     Active Substance: VALPROIC ACID
     Indication: Product used for unknown indication
     Route: 065
     Dates: end: 20190124
  2. CLOZAPINE [Suspect]
     Active Substance: CLOZAPINE
     Indication: Schizophrenia
     Route: 048
     Dates: start: 20001214
  3. CLOZAPINE [Suspect]
     Active Substance: CLOZAPINE
     Dosage: DOSE REDUCED
     Route: 048
     Dates: start: 20180120, end: 2018
  4. CLOZAPINE [Suspect]
     Active Substance: CLOZAPINE
     Dosage: DOSAGE WAS INCREASED
     Route: 048
     Dates: start: 20181218, end: 20181220
  5. CEFTRIAXONE [Suspect]
     Active Substance: CEFTRIAXONE
     Indication: Lower respiratory tract infection
     Route: 065
     Dates: start: 2018
  6. OLANZAPINE [Suspect]
     Active Substance: OLANZAPINE
     Indication: Product used for unknown indication
     Route: 065
     Dates: end: 20190124

REACTIONS (8)
  - Anaphylactic reaction [Unknown]
  - Cardiac arrest [Unknown]
  - Mental disorder [Unknown]
  - Neutropenia [Recovered/Resolved]
  - Influenza [Unknown]
  - Antipsychotic drug level increased [Recovered/Resolved]
  - White blood cell count abnormal [Recovered/Resolved]
  - Pneumonia [Recovered/Resolved]
